FAERS Safety Report 13459214 (Version 2)
Quarter: 2017Q2

REPORT INFORMATION
  Report Type: Spontaneous
  Country: IT (occurrence: IT)
  Receive Date: 20170419
  Receipt Date: 20170428
  Transmission Date: 20170830
  Serious: Yes (Life-Threatening)
  Sender: FDA-Public Use
  Company Number: IT-BAXTER-2017BAX016670

PATIENT
  Age: 16 Year
  Sex: Male
  Weight: 67 kg

DRUGS (8)
  1. VINCRISTINE PFIZER [Suspect]
     Active Substance: VINCRISTINE
     Dosage: INJECTABLE SOLUTION FOR INTRAVENOUS USE
     Route: 042
     Dates: start: 20170404, end: 20170404
  2. COSMEGEN [Suspect]
     Active Substance: DACTINOMYCIN
     Route: 042
     Dates: start: 20170404, end: 20170404
  3. HOLOXAN [Suspect]
     Active Substance: IFOSFAMIDE
     Route: 042
     Dates: start: 20170404, end: 20170404
  4. DOXORUBICIN ACCORD [Suspect]
     Active Substance: DOXORUBICIN HYDROCHLORIDE
     Dosage: CONCENTRATED FOR INFUSION
     Route: 042
     Dates: start: 20170404, end: 20170404
  5. VINCRISTINE PFIZER [Suspect]
     Active Substance: VINCRISTINE
     Indication: SOFT TISSUE SARCOMA
     Dosage: INJECTABLE SOLUTION FOR INTRAVENOUS USE, FIRST CYCLE
     Route: 042
     Dates: start: 20170310
  6. HOLOXAN [Suspect]
     Active Substance: IFOSFAMIDE
     Indication: SOFT TISSUE SARCOMA
     Dosage: FIRST CYCLE
     Route: 042
     Dates: start: 20170310
  7. COSMEGEN [Suspect]
     Active Substance: DACTINOMYCIN
     Indication: SOFT TISSUE SARCOMA
     Dosage: FIRST CYCLE
     Route: 042
     Dates: start: 20170310
  8. DOXORUBICIN ACCORD [Suspect]
     Active Substance: DOXORUBICIN HYDROCHLORIDE
     Indication: SOFT TISSUE SARCOMA
     Dosage: CONCENTRATED FOR INFUSION, FIRST CYCLE
     Route: 042
     Dates: start: 20170310

REACTIONS (6)
  - Loss of consciousness [Recovered/Resolved]
  - Hypotension [Recovered/Resolved]
  - Generalised tonic-clonic seizure [Recovered/Resolved]
  - Somnolence [Recovered/Resolved]
  - Hyperhidrosis [Recovered/Resolved]
  - Tachycardia [Recovered/Resolved]

NARRATIVE: CASE EVENT DATE: 20170404
